FAERS Safety Report 11623448 (Version 1)
Quarter: 2015Q4

REPORT INFORMATION
  Report Type: Spontaneous
  Country: US (occurrence: None)
  Receive Date: 20151009
  Receipt Date: 20151009
  Transmission Date: 20160304
  Serious: Yes (Disabling, Other)
  Sender: FDA-Public Use
  Company Number: None

PATIENT
  Age: 47 Year
  Sex: Female
  Weight: 57.15 kg

DRUGS (10)
  1. LEVAQUIN [Suspect]
     Active Substance: LEVOFLOXACIN
     Indication: UPPER RESPIRATORY TRACT INFECTION
     Dosage: 12/03 - 06/04?7/08?1
     Route: 048
  2. HYDROCODONE [Concomitant]
     Active Substance: HYDROCODONE
  3. MAGNESIUM [Concomitant]
     Active Substance: MAGNESIUM
  4. IODINE [Concomitant]
     Active Substance: IODINE
  5. DIGESTIVE ENZYMES [Concomitant]
     Active Substance: UNSPECIFIED INGREDIENT
  6. VITAMIN D [Concomitant]
     Active Substance: CHOLECALCIFEROL
  7. IBUPROFEN. [Concomitant]
     Active Substance: IBUPROFEN
  8. SOMA BUTABITAL [Concomitant]
  9. CALCIUM [Concomitant]
     Active Substance: CALCIUM
  10. VALIUM [Concomitant]
     Active Substance: DIAZEPAM

REACTIONS (48)
  - Hyperaesthesia [None]
  - Thinking abnormal [None]
  - Blood alkaline phosphatase increased [None]
  - Syncope [None]
  - Depression [None]
  - Dysphonia [None]
  - Chest pain [None]
  - Pain [None]
  - Neuralgia [None]
  - Confusional state [None]
  - Anxiety [None]
  - Nightmare [None]
  - Musculoskeletal pain [None]
  - Memory impairment [None]
  - Panic attack [None]
  - Fatigue [None]
  - Restlessness [None]
  - Dizziness [None]
  - Nervousness [None]
  - Arthralgia [None]
  - Pain in extremity [None]
  - Muscle twitching [None]
  - Headache [None]
  - Drug hypersensitivity [None]
  - Anosmia [None]
  - Impaired work ability [None]
  - Lymphadenopathy [None]
  - Colitis [None]
  - Mental disorder [None]
  - Amnesia [None]
  - Tremor [None]
  - Myalgia [None]
  - Abdominal pain [None]
  - Hypopnoea [None]
  - Vitreous floaters [None]
  - Hypoaesthesia [None]
  - Ageusia [None]
  - Dysgeusia [None]
  - Rotator cuff syndrome [None]
  - Gait disturbance [None]
  - Crying [None]
  - Muscle spasms [None]
  - Nausea [None]
  - Fear of death [None]
  - Asthenia [None]
  - Gastric disorder [None]
  - Paraesthesia [None]
  - Insomnia [None]
